FAERS Safety Report 19197581 (Version 1)
Quarter: 2021Q2

REPORT INFORMATION
  Report Type: Report from Study
  Country: US (occurrence: US)
  Receive Date: 20210429
  Receipt Date: 20210429
  Transmission Date: 20210717
  Serious: Yes (Other)
  Sender: FDA-Public Use
  Company Number: US-MALLINCKRODT PHARMACEUTICALS-T202101799

PATIENT
  Age: 54 Year
  Sex: Female
  Weight: 82 kg

DRUGS (3)
  1. REPOSITORY CORTICOTROPIN INJECTION [Suspect]
     Active Substance: CORTICOTROPIN
     Dosage: 100 UNITS DAILY FOR 7 DAYS
     Route: 058
     Dates: start: 202104
  2. REPOSITORY CORTICOTROPIN INJECTION [Suspect]
     Active Substance: CORTICOTROPIN
     Indication: MULTIPLE SCLEROSIS
     Dosage: 100 UNITS DAILY FOR 7 DAYS
     Route: 058
     Dates: start: 20210413, end: 202104
  3. REPOSITORY CORTICOTROPIN INJECTION [Suspect]
     Active Substance: CORTICOTROPIN
     Dosage: 100 UNITS DAILY FOR 7 DAYS
     Route: 058
     Dates: start: 20210416, end: 202104

REACTIONS (21)
  - Restlessness [Not Recovered/Not Resolved]
  - Arthritis [Unknown]
  - Ulcer [Unknown]
  - Intervertebral disc protrusion [Unknown]
  - Product dose omission issue [Recovered/Resolved]
  - Cognitive disorder [Not Recovered/Not Resolved]
  - Fatigue [Unknown]
  - Migraine [Unknown]
  - Polyuria [Unknown]
  - Pain [Unknown]
  - Heart rate increased [Not Recovered/Not Resolved]
  - Asthenia [Not Recovered/Not Resolved]
  - Blood glucose increased [Unknown]
  - Insomnia [Recovered/Resolved]
  - Anxiety [Not Recovered/Not Resolved]
  - Diabetes mellitus [Not Recovered/Not Resolved]
  - Nerve compression [Unknown]
  - Nervousness [Not Recovered/Not Resolved]
  - Psychomotor hyperactivity [Not Recovered/Not Resolved]
  - Dry mouth [Unknown]
  - Personality change [Not Recovered/Not Resolved]

NARRATIVE: CASE EVENT DATE: 202104
